FAERS Safety Report 8971119 (Version 1)
Quarter: 2012Q4

REPORT INFORMATION
  Report Type: 
  Country: FR (occurrence: FR)
  Receive Date: 20121217
  Receipt Date: 20121217
  Transmission Date: 20130627
  Serious: Yes (Death, Hospitalization)
  Sender: FDA-Public Use
  Company Number: FR-PFIZER INC-9403192

PATIENT
  Age: 49 Year
  Sex: Male
  Weight: 91.4 kg

DRUGS (5)
  1. SALAZOPYRINE [Suspect]
     Indication: RHEUMATISM
     Dosage: 1.5 g, daily
     Route: 048
     Dates: start: 19931212, end: 19931227
  2. FELDENE [Concomitant]
     Indication: RHEUMATISM
     Dosage: 20 mg, daily
     Route: 048
     Dates: start: 19931207, end: 19931214
  3. FELDENE [Concomitant]
     Dosage: 20 mg, daily
     Route: 048
     Dates: start: 19931217, end: 19931223
  4. VOLTAREN [Concomitant]
     Route: 048
     Dates: end: 199312
  5. CYTOTEC [Concomitant]
     Route: 048

REACTIONS (6)
  - Toxic epidermal necrolysis [Fatal]
  - Sepsis [Fatal]
  - Leukopenia [Unknown]
  - Renal failure [Unknown]
  - Thrombocytopenia [Unknown]
  - Anaemia [Unknown]
